FAERS Safety Report 7443567-1 (Version None)
Quarter: 2011Q2

REPORT INFORMATION
  Report Type: 
  Country: None (occurrence: None)
  Receive Date: 20110419
  Receipt Date: 20110407
  Transmission Date: 20111010
  Serious: Yes (Life-Threatening)
  Sender: FDA-Public Use
  Company Number: 2011MA003763

PATIENT
  Age: 56 Year
  Sex: Female

DRUGS (9)
  1. METFORMIN HYDROCHLORIDE [Suspect]
     Indication: TYPE 2 DIABETES MELLITUS
     Dosage: PO
     Route: 048
     Dates: start: 20080301
  2. ACETTLSALICYLIC ACID [Concomitant]
  3. ATORVASTATIN [Concomitant]
  4. GLYCERYL TRINITRATE [Concomitant]
  5. ATORVASTATIN [Concomitant]
  6. GLICLAZIDE [Concomitant]
  7. OMEPRAZOLE [Concomitant]
  8. BISOPROLOL [Concomitant]
  9. CLOPIDOGREL [Concomitant]

REACTIONS (9)
  - CORONARY ARTERY BYPASS [None]
  - HAEMODIALYSIS [None]
  - HYPOPHAGIA [None]
  - LACTIC ACIDOSIS [None]
  - FLUID INTAKE REDUCED [None]
  - COMA SCALE ABNORMAL [None]
  - VOMITING [None]
  - RENAL FAILURE ACUTE [None]
  - HYPOGLYCAEMIA [None]
